FAERS Safety Report 21338292 (Version 1)
Quarter: 2022Q3

REPORT INFORMATION
  Report Type: Spontaneous
  Country: US (occurrence: US)
  Receive Date: 20220915
  Receipt Date: 20220915
  Transmission Date: 20221027
  Serious: No
  Sender: FDA-Public Use
  Company Number: US-PFIZER INC-202201151033

PATIENT
  Age: 81 Year
  Sex: Female
  Weight: 72.57 kg

DRUGS (3)
  1. DOFETILIDE [Suspect]
     Active Substance: DOFETILIDE
     Indication: Arrhythmia
     Dosage: 0.500 MG
  2. DOFETILIDE [Suspect]
     Active Substance: DOFETILIDE
     Dosage: 0.5 MG
     Dates: start: 2016
  3. DOFETILIDE [Suspect]
     Active Substance: DOFETILIDE
     Dosage: 0.25 MG, 2X/DAY
     Dates: start: 20220823

REACTIONS (6)
  - Therapy change [Unknown]
  - Blood pressure decreased [Unknown]
  - Body height decreased [Unknown]
  - Weight increased [Unknown]
  - Balance disorder [Unknown]
  - Dizziness [Unknown]

NARRATIVE: CASE EVENT DATE: 20220823
